FAERS Safety Report 4821952-1 (Version None)
Quarter: 2005Q4

REPORT INFORMATION
  Report Type: 
  Country: None (occurrence: None)
  Receive Date: 20051103
  Receipt Date: 20051021
  Transmission Date: 20060501
  Serious: Yes (Death, Life-Threatening, Hospitalization, Disabling)
  Sender: FDA-Public Use
  Company Number: 2005146197

PATIENT
  Sex: Female

DRUGS (2)
  1. PIROXICAM [Suspect]
     Indication: ARTHRALGIA
     Dosage: 3 IN 1 D, ORAL
     Route: 048
     Dates: start: 20011010, end: 20011024
  2. ALBUTEROL [Concomitant]

REACTIONS (15)
  - ARTHRALGIA [None]
  - BACTERIAL SEPSIS [None]
  - COLLAPSE OF LUNG [None]
  - DIALYSIS [None]
  - DISSEMINATED INTRAVASCULAR COAGULATION [None]
  - HYPOTENSION [None]
  - JOINT STIFFNESS [None]
  - JOINT SWELLING [None]
  - LYMPHOCYTE COUNT DECREASED [None]
  - PHARYNGOLARYNGEAL PAIN [None]
  - PULMONARY OEDEMA [None]
  - RENAL FAILURE ACUTE [None]
  - STEVENS-JOHNSON SYNDROME [None]
  - TOXIC EPIDERMAL NECROLYSIS [None]
  - WHITE BLOOD CELL COUNT DECREASED [None]
